FAERS Safety Report 5813484-9 (Version None)
Quarter: 2008Q3

REPORT INFORMATION
  Report Type: 
  Country: None (occurrence: None)
  Receive Date: 20080717
  Receipt Date: 20080714
  Transmission Date: 20090109
  Serious: Yes (Hospitalization)
  Sender: FDA-Public Use
  Company Number: SE-WYE-G01857608

PATIENT
  Sex: Female

DRUGS (1)
  1. PIPERACILLIN AND TAZOBACTAM [Suspect]
     Indication: FOOT AMPUTATION
     Dosage: UNKNOWN
     Dates: start: 20080220, end: 20080226

REACTIONS (9)
  - ANAEMIA HAEMOLYTIC AUTOIMMUNE [None]
  - ANURIA [None]
  - BLOOD CREATININE INCREASED [None]
  - CONFUSIONAL STATE [None]
  - DIALYSIS [None]
  - HAEMOLYTIC ANAEMIA [None]
  - PLATELET COUNT INCREASED [None]
  - RESPIRATION ABNORMAL [None]
  - WHITE BLOOD CELL COUNT INCREASED [None]
